FAERS Safety Report 7098130-1 (Version None)
Quarter: 2010Q4

REPORT INFORMATION
  Report Type: 
  Country: None (occurrence: None)
  Receive Date: 20101112
  Receipt Date: 20101108
  Transmission Date: 20110411
  Serious: Yes (Death, Hospitalization, Other)
  Sender: FDA-Public Use
  Company Number: PHHY2009CA32606

PATIENT
  Sex: Female

DRUGS (5)
  1. SANDOSTATIN LAR [Suspect]
     Indication: NEUROENDOCRINE TUMOUR
     Dosage: 30 MG, TIW
     Route: 030
     Dates: start: 20051107
  2. SANDOSTATIN LAR [Suspect]
     Dosage: 40 MG, TIW
     Route: 030
     Dates: start: 20091117
  3. SANDOSTATIN LAR [Suspect]
     Dosage: 30 MG, TIW
     Route: 030
  4. INSULIN [Concomitant]
  5. ORAL HYPOGLYCEMICS [Concomitant]

REACTIONS (9)
  - BLOOD GLUCOSE INCREASED [None]
  - DEATH [None]
  - DIARRHOEA [None]
  - DIZZINESS [None]
  - FATIGUE [None]
  - HYPERHIDROSIS [None]
  - INJECTION SITE PAIN [None]
  - NAUSEA [None]
  - WEIGHT DECREASED [None]
